FAERS Safety Report 8997682 (Version 1)
Quarter: 2013Q1

REPORT INFORMATION
  Report Type: Spontaneous
  Country: CO (occurrence: CO)
  Receive Date: 20130104
  Receipt Date: 20130104
  Transmission Date: 20140127
  Serious: Yes (Other)
  Sender: FDA-Public Use
  Company Number: CO-VERTEX PHARMACEUTICALS INC.-2013-000018

PATIENT
  Age: 61 Year
  Sex: Male
  Weight: 75 kg

DRUGS (3)
  1. INCIVO [Suspect]
     Indication: HEPATITIS C
     Dosage: DOSAGE FORM: TABLET
     Route: 048
     Dates: start: 20121019
  2. INTERFERON [Concomitant]
     Dosage: DOSAGE FORM: UNKNOWN
     Route: 065
     Dates: start: 20121019
  3. RIBAVIRIN [Concomitant]
     Dosage: DOSAGE FORM: UNKNOWN
     Route: 065
     Dates: start: 20121019

REACTIONS (4)
  - Fungal skin infection [Not Recovered/Not Resolved]
  - Oedema [Unknown]
  - Blood count abnormal [Not Recovered/Not Resolved]
  - Pruritus [Unknown]
